FAERS Safety Report 20156510 (Version 1)
Quarter: 2021Q4

REPORT INFORMATION
  Report Type: Spontaneous
  Country: MY (occurrence: MY)
  Receive Date: 20211207
  Receipt Date: 20211207
  Transmission Date: 20220303
  Serious: Yes (Other)
  Sender: FDA-Public Use
  Company Number: MY-MLMSERVICE-20211125-3237664-1

PATIENT
  Age: 33 Year
  Sex: Female

DRUGS (4)
  1. ALBUTEROL [Suspect]
     Active Substance: ALBUTEROL
     Indication: Asthma
     Dosage: 5 MG NEBULISED SALBUTAMOL (FOLLOWED BY ANOTHER 5 MG NEBULISED SALBUTAMOL)
     Route: 055
  2. HYDROCORTISONE [Concomitant]
     Active Substance: HYDROCORTISONE
     Indication: Asthma
     Route: 042
  3. IPRATROPIUM [Concomitant]
     Active Substance: IPRATROPIUM
     Indication: Asthma
     Dosage: METERED-DOSE INHALER
     Route: 055
  4. SODIUM CHLORIDE [Concomitant]
     Active Substance: SODIUM CHLORIDE
     Indication: Blood lactic acid increased
     Route: 042

REACTIONS (1)
  - Lactic acidosis [Recovered/Resolved]
